FAERS Safety Report 8593615-0 (Version None)
Quarter: 2012Q3

REPORT INFORMATION
  Report Type: 
  Country: None (occurrence: None)
  Receive Date: 20120814
  Receipt Date: 20120807
  Transmission Date: 20120928
  Serious: Yes (Hospitalization, Other)
  Sender: FDA-Public Use
  Company Number: JP-ROCHE-1099991

PATIENT
  Sex: Female

DRUGS (35)
  1. ACTEMRA [Suspect]
     Route: 041
     Dates: start: 20081007, end: 20081007
  2. ACTEMRA [Suspect]
     Route: 041
     Dates: start: 20090406, end: 20090406
  3. BREDININ [Concomitant]
     Route: 048
     Dates: start: 20080722, end: 20080728
  4. GLAKAY [Concomitant]
     Indication: PROPHYLAXIS
     Route: 048
  5. LIVALO [Concomitant]
     Route: 048
  6. ACTEMRA [Suspect]
     Route: 041
     Dates: start: 20081216, end: 20081216
  7. ACTEMRA [Suspect]
     Route: 041
     Dates: start: 20090113, end: 20090113
  8. BREDININ [Concomitant]
     Route: 048
     Dates: start: 20080729, end: 20081127
  9. PREDNISOLONE [Concomitant]
     Route: 048
     Dates: start: 20081014, end: 20081112
  10. OLMESARTAN MEDOXOMIL [Concomitant]
     Route: 048
  11. KREMEZIN [Concomitant]
     Route: 048
  12. ACTEMRA [Suspect]
     Route: 041
     Dates: start: 20090629, end: 20090629
  13. GLAKAY [Concomitant]
     Route: 048
  14. ACTEMRA [Suspect]
     Indication: RHEUMATOID ARTHRITIS
     Route: 041
     Dates: start: 20080902, end: 20080902
  15. ACTEMRA [Suspect]
     Route: 041
     Dates: start: 20081113, end: 20081113
  16. ACTEMRA [Suspect]
     Route: 041
     Dates: start: 20091221, end: 20091221
  17. PREDNISOLONE [Concomitant]
     Indication: RHEUMATOID ARTHRITIS
     Route: 048
     Dates: end: 20080915
  18. PREDNISOLONE [Concomitant]
     Route: 048
     Dates: start: 20090114, end: 20090309
  19. ISONIAZID [Concomitant]
     Indication: ANTIBIOTIC PROPHYLAXIS
     Route: 048
  20. CONIEL [Concomitant]
     Route: 048
  21. ACTEMRA [Suspect]
     Route: 041
     Dates: start: 20090507, end: 20090507
  22. ACTEMRA [Suspect]
     Route: 041
     Dates: start: 20090601, end: 20090601
  23. ACTEMRA [Suspect]
     Route: 041
     Dates: start: 20090831, end: 20090831
  24. ACTEMRA [Suspect]
     Route: 041
     Dates: start: 20091026, end: 20091026
  25. ACTEMRA [Suspect]
     Route: 041
     Dates: start: 20091120, end: 20091120
  26. PREDNISOLONE [Concomitant]
     Route: 048
     Dates: start: 20081113, end: 20081216
  27. PREDNISOLONE [Concomitant]
     Route: 048
     Dates: start: 20081217, end: 20090113
  28. PREDNISOLONE [Concomitant]
     Route: 048
     Dates: start: 20080916, end: 20081013
  29. PREDNISOLONE [Concomitant]
     Route: 048
  30. ACTEMRA [Suspect]
     Route: 041
     Dates: start: 20090210, end: 20090210
  31. ACTEMRA [Suspect]
     Route: 041
     Dates: start: 20090803, end: 20090803
  32. ACTEMRA [Suspect]
     Route: 041
     Dates: start: 20090928, end: 20090928
  33. ALENDRONATE SODIUM [Concomitant]
     Indication: PROPHYLAXIS
     Dosage: DRUG REPORTED AS: BONALON 35 MG
     Route: 048
  34. ALLOPURINOL [Concomitant]
     Route: 048
  35. ACTEMRA [Suspect]
     Route: 041
     Dates: start: 20090309, end: 20090309

REACTIONS (2)
  - THYROID CANCER [None]
  - VOCAL CORD PARALYSIS [None]
